FAERS Safety Report 10913308 (Version 1)
Quarter: 2015Q1

REPORT INFORMATION
  Report Type: Spontaneous
  Country: US (occurrence: None)
  Receive Date: 20150309
  Receipt Date: 20150309
  Transmission Date: 20150721
  Serious: No
  Sender: FDA-Public Use
  Company Number: US-20140007

PATIENT
  Age: 33 Year
  Sex: Male
  Weight: 88 kg

DRUGS (1)
  1. DOTAREM [Suspect]
     Active Substance: GADOTERATE MEGLUMINE
     Indication: FACIAL PAIN
     Dosage: NOT OTHERWISE SPECIFIED
     Route: 042
     Dates: start: 20140613, end: 20140613

REACTIONS (3)
  - Injection site pain [None]
  - Injection site swelling [None]
  - Vein disorder [None]

NARRATIVE: CASE EVENT DATE: 20140614
